FAERS Safety Report 17938261 (Version 2)
Quarter: 2020Q4

REPORT INFORMATION
  Report Type: Report from Study
  Country: CA (occurrence: CA)
  Receive Date: 20200624
  Receipt Date: 20201020
  Transmission Date: 20210113
  Serious: Yes (Other)
  Sender: FDA-Public Use
  Company Number: CA-GLAXOSMITHKLINE-CA2020AMR087944

PATIENT
  Sex: Female

DRUGS (6)
  1. PREDNISONE. [Suspect]
     Active Substance: PREDNISONE
     Indication: PRODUCT USED FOR UNKNOWN INDICATION
     Dosage: UNK UNK, PRN, 20 MG
     Dates: start: 2018, end: 2019
  2. SALBUTAMOL SULPHATE [Suspect]
     Active Substance: ALBUTEROL SULFATE
     Indication: PRODUCT USED FOR UNKNOWN INDICATION
     Dosage: UNK, 100 MCG, PRN
     Route: 055
     Dates: start: 2015
  3. SINGULAIR [Suspect]
     Active Substance: MONTELUKAST SODIUM
     Indication: PRODUCT USED FOR UNKNOWN INDICATION
     Dosage: UNK, 10 MG, QD
     Dates: start: 2017
  4. ADVAIR HFA [Suspect]
     Active Substance: FLUTICASONE PROPIONATE\SALMETEROL XINAFOATE
     Indication: PRODUCT USED FOR UNKNOWN INDICATION
     Dosage: 2 PUFF(S), BID, 250/50 MCG
     Route: 055
     Dates: start: 2017
  5. NUCALA [Concomitant]
     Active Substance: MEPOLIZUMAB
     Indication: ASTHMA
     Dosage: 100 MG, Z, 1 MONTH
     Route: 042
     Dates: start: 20180715
  6. NUCALA [Concomitant]
     Active Substance: MEPOLIZUMAB
     Dosage: 100 MG, Z, 1 MONTH
     Route: 042
     Dates: start: 20200611

REACTIONS (4)
  - Blood count abnormal [Unknown]
  - Nasopharyngitis [Unknown]
  - Therapeutic product effect incomplete [Unknown]
  - Asthma [Recovering/Resolving]
